FAERS Safety Report 4781647-X (Version None)
Quarter: 2005Q3

REPORT INFORMATION
  Report Type: 
  Country: None (occurrence: None)
  Receive Date: 20050927
  Receipt Date: 20050912
  Transmission Date: 20060218
  Serious: Yes (Hospitalization)
  Sender: FDA-Public Use
  Company Number: 230021K05FRA

PATIENT
  Age: 35 Year
  Sex: Female
  Weight: 44 kg

DRUGS (8)
  1. REBIF [Suspect]
     Indication: MULTIPLE SCLEROSIS
     Dosage: 44 MCG, 3 IN 1 WEEKS, SUBCUTANEOUS
     Route: 058
     Dates: start: 20030930
  2. PAROXETINE HCL [Concomitant]
  3. BROMAZEPAM [Concomitant]
  4. TRIMETAZIDINE HYDROCHLORIDE [Concomitant]
  5. MACROGOL [Concomitant]
  6. ACETAMINOPHEN [Concomitant]
  7. EUGYNON [Concomitant]
  8. AMANTADINE HCL [Concomitant]

REACTIONS (4)
  - GAMMA-GLUTAMYLTRANSFERASE INCREASED [None]
  - PANCREATIC CYST [None]
  - PANCREATIC DISORDER [None]
  - PANCREATITIS ACUTE [None]
